FAERS Safety Report 4382237-3 (Version None)
Quarter: 2004Q2

REPORT INFORMATION
  Report Type: 
  Country: None (occurrence: None)
  Receive Date: 20040610
  Receipt Date: 20040610
  Transmission Date: 20050107
  Serious: Yes (Other)
  Sender: FDA-Public Use
  Company Number: 2004211631US

PATIENT
  Age: 47 Year
  Sex: Male
  Weight: 93.4 kg

DRUGS (4)
  1. BEXTRA [Suspect]
     Indication: OSTEOARTHRITIS
     Dosage: 10 MG
  2. NORVASC [Concomitant]
  3. ASPIRIN [Concomitant]
  4. PRILOSEC [Concomitant]

REACTIONS (6)
  - ALANINE AMINOTRANSFERASE INCREASED [None]
  - CHILLS [None]
  - NIGHT SWEATS [None]
  - PYREXIA [None]
  - RASH [None]
  - VASCULITIC RASH [None]
